FAERS Safety Report 4392519-7 (Version None)
Quarter: 2004Q3

REPORT INFORMATION
  Report Type: 
  Country: None (occurrence: None)
  Receive Date: 20040702
  Receipt Date: 20040622
  Transmission Date: 20050211
  Serious: No
  Sender: FDA-Public Use
  Company Number: 2004-117721-NL

PATIENT
  Age: 44 Year
  Sex: Male

DRUGS (2)
  1. MIRTAZAPINE [Suspect]
     Indication: POST-TRAUMATIC STRESS DISORDER
     Dosage: 30 MG
     Dates: start: 20040528, end: 20040528
  2. ALPRAZOLAM [Concomitant]

REACTIONS (4)
  - DYSARTHRIA [None]
  - FATIGUE [None]
  - INSOMNIA [None]
  - MYOCLONUS [None]
